FAERS Safety Report 9889349 (Version 2)
Quarter: 2014Q1

REPORT INFORMATION
  Report Type: Report from Study
  Country: DE (occurrence: DE)
  Receive Date: 20140211
  Receipt Date: 20140221
  Transmission Date: 20141002
  Serious: Yes (Death, Hospitalization, Other)
  Sender: FDA-Public Use
  Company Number: DE-ABBVIE-14P-062-1199191-00

PATIENT
  Sex: Male

DRUGS (4)
  1. HUMIRA [Suspect]
     Indication: RHEUMATOID ARTHRITIS
     Route: 058
     Dates: start: 200909, end: 201007
  2. HUMIRA [Suspect]
     Route: 058
     Dates: start: 201101, end: 201102
  3. LEFLUNOMIDE [Concomitant]
     Indication: RHEUMATOID ARTHRITIS
     Dates: start: 200905, end: 201107
  4. LEFLUNOMIDE [Concomitant]
     Dates: start: 20130313

REACTIONS (17)
  - Renal failure [Fatal]
  - Sepsis [Fatal]
  - Infection [Fatal]
  - Bacteraemia [Fatal]
  - Peripheral arterial occlusive disease [Fatal]
  - Skin ulcer [Fatal]
  - Extremity necrosis [Fatal]
  - Pneumonia [Fatal]
  - Hyperparathyroidism secondary [Fatal]
  - Metabolic acidosis [Fatal]
  - Hyponatraemia [Unknown]
  - Oesophageal candidiasis [Unknown]
  - Incisional hernia [Unknown]
  - Carditis [Unknown]
  - Gastrooesophageal reflux disease [Unknown]
  - Gastric disorder [Unknown]
  - Nephrogenic anaemia [Unknown]
